FAERS Safety Report 8136057-4 (Version None)
Quarter: 2012Q1

REPORT INFORMATION
  Report Type: 
  Country: None (occurrence: None)
  Receive Date: 20120214
  Receipt Date: 20120130
  Transmission Date: 20120608
  Serious: Yes (Hospitalization, Other)
  Sender: FDA-Public Use
  Company Number: US-ARROW GEN-2012-01855

PATIENT
  Age: 7 Month
  Sex: Male

DRUGS (3)
  1. FENTANYL CITRATE [Suspect]
     Indication: SEDATION
  2. LORAZEPAM [Suspect]
     Indication: SEDATION
  3. MORPHINE SULFATE [Suspect]
     Indication: SEDATION

REACTIONS (1)
  - DELIRIUM [None]
